FAERS Safety Report 9814623 (Version 1)
Quarter: 2014Q1

REPORT INFORMATION
  Report Type: Spontaneous
  Country: DK (occurrence: FR)
  Receive Date: 20140113
  Receipt Date: 20140113
  Transmission Date: 20141002
  Serious: Yes (Hospitalization)
  Sender: FDA-Public Use
  Company Number: FR-FRI-1000052784

PATIENT
  Age: 87 Year
  Sex: Female
  Weight: 67 kg

DRUGS (14)
  1. ESCITALOPRAM [Suspect]
     Dosage: 1 DF
     Route: 048
  2. MINISINTROM [Suspect]
     Indication: ATRIAL FIBRILLATION
     Dosage: 1 MG ON EVEN DAYS AND 2 MG ON ODD DAYS
     Dates: end: 201308
  3. ACTISKENAN [Concomitant]
     Dosage: 5 MG
  4. TRIATEC [Concomitant]
     Dosage: 5 MG
  5. SERESTA [Concomitant]
     Dosage: 10 MG
  6. PRIMPERAN [Concomitant]
     Dosage: 30 MG
  7. ATARAX [Concomitant]
     Dosage: 75 MG
  8. CACIT D3 [Concomitant]
     Dosage: 1 DF
  9. CARDENSIEL [Concomitant]
     Dosage: 3.75 MG
  10. DAFALGAN [Concomitant]
     Dosage: 3 GRAMS (SYSTEMATIC)
  11. LANTUS [Concomitant]
     Dosage: 600 IU/ML
  12. LASILIX [Concomitant]
     Dosage: 375 MG
  13. MACROGOL [Concomitant]
     Dosage: 2 DF (SYSTEMATIC)
  14. POLARAMINE [Concomitant]
     Dosage: 6 MG

REACTIONS (2)
  - International normalised ratio increased [Recovered/Resolved]
  - Subdural haematoma [Recovered/Resolved]
